FAERS Safety Report 18359923 (Version 2)
Quarter: 2020Q4

REPORT INFORMATION
  Report Type: Spontaneous
  Country: US (occurrence: US)
  Receive Date: 20201008
  Receipt Date: 20201218
  Transmission Date: 20210114
  Serious: Yes (Other)
  Sender: FDA-Public Use
  Company Number: US-HIKMA PHARMACEUTICALS USA INC.-US-H14001-20-52269

PATIENT
  Age: 53 Year
  Sex: Male

DRUGS (10)
  1. EMTRICITABINE [Concomitant]
     Active Substance: EMTRICITABINE
     Indication: HIV INFECTION
     Dosage: UNKNOWN
     Route: 065
     Dates: start: 2005, end: 2012
  2. ABACAVIR. [Concomitant]
     Active Substance: ABACAVIR
     Indication: HIV INFECTION
     Dosage: UNKNOWN
     Route: 065
     Dates: start: 2015, end: 2017
  3. TENOFOVIR [Concomitant]
     Active Substance: TENOFOVIR
     Indication: HIV INFECTION
     Dosage: UNKNOWN
     Route: 065
     Dates: start: 2005, end: 2012
  4. RITONAVIR. [Suspect]
     Active Substance: RITONAVIR
     Indication: HIV INFECTION
     Dosage: UNKNOWN
     Route: 065
     Dates: start: 2005, end: 2012
  5. RILPIVIRINE [Concomitant]
     Active Substance: RILPIVIRINE
     Indication: HIV INFECTION
     Dosage: UNKNOWN
     Route: 065
     Dates: start: 2012, end: 2015
  6. ZIDOVUDINE. [Concomitant]
     Active Substance: ZIDOVUDINE
     Indication: HIV INFECTION
     Dosage: UNKNOWN
     Route: 065
     Dates: start: 2005, end: 2012
  7. DOLUTEGRAVIR [Concomitant]
     Active Substance: DOLUTEGRAVIR
     Indication: HIV INFECTION
     Dosage: UNKNOWN
     Route: 065
     Dates: start: 2015, end: 2017
  8. LAMIVUDINE. [Concomitant]
     Active Substance: LAMIVUDINE
     Indication: HIV INFECTION
     Dosage: UNKNOWN
     Route: 065
     Dates: start: 2015, end: 2017
  9. TENOFOVIR [Concomitant]
     Active Substance: TENOFOVIR
     Dosage: UNKNOWN
     Route: 065
     Dates: start: 2012, end: 2015
  10. EMTRICITABINE [Concomitant]
     Active Substance: EMTRICITABINE
     Dosage: UNKNOWN
     Route: 065
     Dates: start: 2012, end: 2015

REACTIONS (3)
  - Maculopathy [Unknown]
  - Retinal toxicity [Unknown]
  - Retinal pigmentation [Unknown]

NARRATIVE: CASE EVENT DATE: 2015
